FAERS Safety Report 5297072-1 (Version None)
Quarter: 2007Q1

REPORT INFORMATION
  Report Type: 
  Country: None (occurrence: None)
  Receive Date: 20070201
  Receipt Date: 20061004
  Transmission Date: 20070707
  Serious: No
  Sender: FDA-Public Use
  Company Number: 2006PV022506

PATIENT
  Age: 41 Year
  Sex: Male
  Weight: 133.8111 kg

DRUGS (3)
  1. BYETTA [Suspect]
     Indication: GLUCOSE TOLERANCE IMPAIRED
     Dosage: 5 MCG;SC
     Route: 058
     Dates: start: 20061003
  2. BYETTA [Suspect]
     Indication: WEIGHT DECREASED
     Dosage: 5 MCG;SC
     Route: 058
     Dates: start: 20061003
  3. METFORMIN HCL [Concomitant]

REACTIONS (2)
  - DEPRESSED MOOD [None]
  - HEADACHE [None]
